FAERS Safety Report 11168646 (Version 1)
Quarter: 2015Q2

REPORT INFORMATION
  Report Type: Spontaneous
  Country: BR (occurrence: BR)
  Receive Date: 20150605
  Receipt Date: 20150605
  Transmission Date: 20150821
  Serious: Yes (Other)
  Sender: FDA-Public Use
  Company Number: BR-AMGEN-BRASP2015054655

PATIENT
  Age: 61 Year
  Sex: Male
  Weight: 74.97 kg

DRUGS (2)
  1. ENBREL [Suspect]
     Active Substance: ETANERCEPT
     Indication: RHEUMATOID ARTHRITIS
     Dosage: 50 MG, WEEKLY
     Route: 058
     Dates: start: 201304, end: 201411
  2. PRELONE [Concomitant]
     Active Substance: PREDNISOLONE
     Dosage: 1 TABLET, DAILY

REACTIONS (3)
  - Diabetes mellitus [Unknown]
  - Lower extremity mass [Unknown]
  - Drug ineffective [Unknown]
